FAERS Safety Report 20319518 (Version 3)
Quarter: 2022Q4

REPORT INFORMATION
  Report Type: Report from Study
  Country: CO (occurrence: CO)
  Receive Date: 20220110
  Receipt Date: 20221223
  Transmission Date: 20230112
  Serious: Yes (Other)
  Sender: FDA-Public Use
  Company Number: CO-ABBVIE-22K-036-4226759-00

PATIENT
  Age: 68 Year
  Sex: Male

DRUGS (2)
  1. ZEMPLAR [Suspect]
     Active Substance: PARICALCITOL
     Indication: Hyperparathyroidism secondary
     Dosage: POST-DIALYSIS
     Route: 042
     Dates: start: 20200730, end: 20211202
  2. ZEMPLAR [Suspect]
     Active Substance: PARICALCITOL
     Indication: Hyperparathyroidism secondary
     Dosage: 1 UNIT DOSE POST-DIALYSIS?FORM STRENGTH: 5 MICROGRAM
     Route: 042
     Dates: end: 20220719

REACTIONS (25)
  - Vision blurred [Recovering/Resolving]
  - Benign prostatic hyperplasia [Recovering/Resolving]
  - Fall [Recovering/Resolving]
  - Glaucoma [Recovering/Resolving]
  - Yawning [Recovering/Resolving]
  - Eye disorder [Recovering/Resolving]
  - Muscle spasms [Recovering/Resolving]
  - Anaemia [Recovering/Resolving]
  - Cardiac failure [Not Recovered/Not Resolved]
  - Micturition disorder [Recovering/Resolving]
  - Prostatic disorder [Recovering/Resolving]
  - Fluid retention [Recovered/Resolved]
  - Urine analysis abnormal [Not Recovered/Not Resolved]
  - Headache [Recovering/Resolving]
  - Culture urine positive [Not Recovered/Not Resolved]
  - Hunger [Recovering/Resolving]
  - Gait disturbance [Recovering/Resolving]
  - Nausea [Recovering/Resolving]
  - Blood urine present [Recovering/Resolving]
  - Renal disorder [Unknown]
  - Blood phosphorus abnormal [Recovered/Resolved]
  - Blood glucose decreased [Recovering/Resolving]
  - Dizziness [Recovered/Resolved]
  - Dizziness [Recovering/Resolving]
  - Micturition disorder [Recovering/Resolving]

NARRATIVE: CASE EVENT DATE: 20201201
